FAERS Safety Report 5677023-8 (Version None)
Quarter: 2008Q1

REPORT INFORMATION
  Report Type: 
  Country: None (occurrence: None)
  Receive Date: 20080324
  Receipt Date: 20080311
  Transmission Date: 20080703
  Serious: Yes (Other)
  Sender: FDA-Public Use
  Company Number: US-AMGEN-KDL266032

PATIENT
  Sex: Female
  Weight: 55.4 kg

DRUGS (15)
  1. ENBREL [Suspect]
     Indication: RHEUMATOID ARTHRITIS
     Route: 058
     Dates: end: 20080201
  2. METHOTREXATE [Concomitant]
     Route: 048
     Dates: end: 20080201
  3. GLYBURIDE [Concomitant]
  4. METFORMIN [Concomitant]
  5. ARANESP [Concomitant]
  6. PRILOSEC [Concomitant]
     Route: 048
  7. LOTENSIN [Concomitant]
     Route: 048
  8. FOLIC ACID [Concomitant]
     Route: 048
  9. FOSAMAX [Concomitant]
     Route: 048
  10. ASPIRIN [Concomitant]
     Route: 048
  11. FUROSEMIDE [Concomitant]
  12. QUININE [Concomitant]
     Route: 048
  13. TYLENOL W/ CODEINE NO. 3 [Concomitant]
  14. FERROUS SULFATE TAB [Concomitant]
     Route: 048
  15. PLAQUENIL [Concomitant]
     Route: 048

REACTIONS (7)
  - ABDOMINAL PAIN UPPER [None]
  - ARTHRALGIA [None]
  - ERYTHEMA NODOSUM [None]
  - HEPATIC ENZYME INCREASED [None]
  - MUSCULOSKELETAL PAIN [None]
  - PAIN IN EXTREMITY [None]
  - RED BLOOD CELL SEDIMENTATION RATE INCREASED [None]
